FAERS Safety Report 9429696 (Version 1)
Quarter: 2013Q3

REPORT INFORMATION
  Report Type: Report from Study
  Country: US (occurrence: US)
  Receive Date: 20130730
  Receipt Date: 20130730
  Transmission Date: 20140515
  Serious: No
  Sender: FDA-Public Use
  Company Number: US-ABBOTT-13P-163-1044942-00

PATIENT
  Sex: Male
  Weight: 108.05 kg

DRUGS (7)
  1. NIASPAN (COATED) [Suspect]
     Indication: ATRIAL FIBRILLATION
     Dosage: AT BEDTIME
     Route: 048
  2. NIASPAN (COATED) [Suspect]
     Indication: STENT PLACEMENT
  3. CARVIDILOL [Concomitant]
     Indication: PRODUCT USED FOR UNKNOWN INDICATION
     Route: 048
  4. MULTIVITAMIN [Concomitant]
     Indication: PRODUCT USED FOR UNKNOWN INDICATION
     Route: 048
  5. ASPIRIN [Concomitant]
     Indication: PRODUCT USED FOR UNKNOWN INDICATION
     Dosage: DURING THE DAY
     Route: 048
  6. SIMVASTATIN [Concomitant]
     Indication: PRODUCT USED FOR UNKNOWN INDICATION
     Route: 048
  7. PRADAXA [Concomitant]
     Indication: PRODUCT USED FOR UNKNOWN INDICATION
     Route: 048

REACTIONS (1)
  - Flushing [Recovered/Resolved]
